FAERS Safety Report 4750400-5 (Version None)
Quarter: 2005Q3

REPORT INFORMATION
  Report Type: 
  Country: None (occurrence: None)
  Receive Date: 20050818
  Receipt Date: 20050811
  Transmission Date: 20060218
  Serious: Yes (Other)
  Sender: FDA-Public Use
  Company Number: 2005-02969

PATIENT
  Age: 49 Year
  Sex: Male

DRUGS (3)
  1. PREDNISONE [Suspect]
     Indication: IMMUNOSUPPRESSANT DRUG THERAPY
     Dosage: 5 MG, DAILY, ORAL
     Route: 048
  2. MYCOPHENOLATE MOFETIL (MYCOPHENOLATE MOFETIL) [Suspect]
     Indication: IMMUNOSUPPRESSANT DRUG THERAPY
     Dosage: 500 MG, BID
  3. TACROLIMUS (TACROLIMUS) [Suspect]
     Dosage: 2 MG, BID

REACTIONS (1)
  - MYCOSIS FUNGOIDES [None]
